FAERS Safety Report 6814042-X (Version None)
Quarter: 2010Q3

REPORT INFORMATION
  Report Type: 
  Country: None (occurrence: None)
  Receive Date: 20100702
  Receipt Date: 20100622
  Transmission Date: 20110219
  Serious: Yes (Hospitalization, Other)
  Sender: FDA-Public Use
  Company Number: PHHY2010KR21654

PATIENT
  Age: 23 Year
  Sex: Female

DRUGS (12)
  1. CYCLOSPORINE [Interacting]
     Indication: RENAL TRANSPLANT
     Dosage: 25 MG, BID
  2. CYCLOSPORINE [Interacting]
     Dosage: 175 MG, UNK
  3. MYCOPHENOLATE MOFETIL [Suspect]
     Indication: IMMUNOSUPPRESSION
  4. TACROLIMUS [Suspect]
     Indication: IMMUNOSUPPRESSION
  5. AZATHIOPRINE [Suspect]
     Indication: IMMUNOSUPPRESSION
  6. VORICONAZOLE [Interacting]
     Dosage: 200 MG, BID
  7. BASILIXIMAB [Concomitant]
  8. STEROIDS NOS [Concomitant]
  9. PREDNISOLONE [Concomitant]
     Dosage: 5 MG, QD
  10. PREDNISOLONE [Concomitant]
     Dosage: 5 MG, BID
  11. TRIMETHOPRIM [Concomitant]
     Dosage: 80 MG/400 MG
  12. MYCOPHENOLATE SODIUM [Concomitant]
     Dosage: 720 MG/DAY

REACTIONS (13)
  - ASPERGILLOSIS [None]
  - BLOOD CREATININE INCREASED [None]
  - COUGH [None]
  - DIARRHOEA [None]
  - DRUG INTERACTION [None]
  - DYSPNOEA [None]
  - ERYTHEMA [None]
  - FUNGAL SKIN INFECTION [None]
  - HYPERPYREXIA [None]
  - IMMUNOSUPPRESSANT DRUG LEVEL DECREASED [None]
  - LUNG INFECTION [None]
  - NODULE [None]
  - SKIN OPERATION [None]
